FAERS Safety Report 8471491-4 (Version None)
Quarter: 2012Q2

REPORT INFORMATION
  Report Type: 
  Country: None (occurrence: None)
  Receive Date: 20120627
  Receipt Date: 20120625
  Transmission Date: 20120825
  Serious: Yes (Hospitalization)
  Sender: FDA-Public Use
  Company Number: PHHO2011DE03647

PATIENT
  Sex: Female
  Weight: 85.9 kg

DRUGS (14)
  1. AFINITOR [Suspect]
     Indication: LYMPHANGIOLEIOMYOMATOSIS
     Dosage: CODE NOT BROKEN
     Route: 048
     Dates: start: 20100520, end: 20110224
  2. BLINDED NO TREATMENT RECEIVED [Suspect]
     Dosage: CODE NOT BROKEN
     Route: 048
     Dates: start: 20110325
  3. PLACEBO [Suspect]
     Dosage: CODE NOT BROKEN
     Route: 048
     Dates: start: 20110325
  4. SABRIL [Concomitant]
     Indication: CONVULSION
     Dosage: 1500 MG, BID
     Route: 048
     Dates: start: 20070101
  5. LEVOTHYROXINE SODIUM [Concomitant]
     Indication: HYPOTHYROIDISM
     Dosage: 25 MG, DAILY
     Route: 048
     Dates: start: 20090601
  6. PLACEBO [Suspect]
     Indication: LYMPHANGIOLEIOMYOMATOSIS
     Dosage: CODE NOT BROKEN
     Route: 048
     Dates: start: 20100520, end: 20110224
  7. MELPERON [Concomitant]
     Dosage: 50 MG, BID
     Dates: start: 20110401, end: 20120616
  8. LEPTILAN [Concomitant]
     Indication: CONVULSION
     Dosage: 900 - O - 1200 MG DAILY
     Dates: start: 20070101
  9. IMPLANON [Concomitant]
     Indication: CONTRACEPTION
     Dosage: UNK
     Dates: start: 20110130
  10. TORSEMIDE [Concomitant]
     Indication: OEDEMA
     Dosage: 5 MG, DAILY
     Route: 048
     Dates: start: 20120615
  11. BLINDED NO TREATMENT RECEIVED [Suspect]
     Indication: LYMPHANGIOLEIOMYOMATOSIS
     Dosage: CODE NOT BROKEN
     Route: 048
     Dates: start: 20100520, end: 20110224
  12. LAMOTRIGINE [Concomitant]
     Indication: CONVULSION
     Dosage: 200 - O - 100 MG DAILY
     Route: 048
     Dates: start: 20070101
  13. HYDROCHLOROTHIAZIDE [Concomitant]
     Indication: HYPOTENSION
     Dosage: 25 MG, UNK
     Route: 048
     Dates: start: 20100301
  14. AFINITOR [Suspect]
     Dosage: CODE NOT BROKEN
     Route: 048
     Dates: start: 20110325

REACTIONS (2)
  - INJURY [None]
  - AFFECTIVE DISORDER [None]
